FAERS Safety Report 18734810 (Version 1)
Quarter: 2021Q1

REPORT INFORMATION
  Report Type: Spontaneous
  Country: CA (occurrence: CA)
  Receive Date: 20210113
  Receipt Date: 20210113
  Transmission Date: 20210419
  Serious: Yes (Hospitalization, Other)
  Sender: FDA-Public Use
  Company Number: CA-ACCORD-214014

PATIENT
  Sex: Male

DRUGS (16)
  1. COSENTYX [Suspect]
     Active Substance: SECUKINUMAB
     Indication: PSORIATIC ARTHROPATHY
     Route: 065
  2. HYDROXYCHLOROQUINE [Concomitant]
     Active Substance: HYDROXYCHLOROQUINE
     Indication: PSORIATIC ARTHROPATHY
  3. OMEPRAZOLE. [Concomitant]
     Active Substance: OMEPRAZOLE
     Dosage: 1 EVERY 1 DAYS
  4. AMIODARONE [Suspect]
     Active Substance: AMIODARONE
     Indication: PRODUCT USED FOR UNKNOWN INDICATION
     Dosage: 1 EVERY 1 DAYS
     Route: 065
  5. SULFASALAZINE. [Suspect]
     Active Substance: SULFASALAZINE
     Indication: PRODUCT USED FOR UNKNOWN INDICATION
     Dosage: 1 EVERY 1 DAYS
     Route: 065
  6. IXEKIZUMABUM [Concomitant]
     Active Substance: IXEKIZUMAB
     Dosage: 1 EVERY 1 DAYS
  7. METHOTREXATE. [Suspect]
     Active Substance: METHOTREXATE
     Indication: PSORIATIC ARTHROPATHY
     Dosage: 1 EVERY 1 WEEKS
     Route: 058
  8. ENBREL [Suspect]
     Active Substance: ETANERCEPT
     Indication: PSORIATIC ARTHROPATHY
     Route: 065
  9. TALTZ [Suspect]
     Active Substance: IXEKIZUMAB
     Indication: PSORIATIC ARTHROPATHY
     Route: 065
  10. FOLIC ACID. [Concomitant]
     Active Substance: FOLIC ACID
     Dosage: 1 EVERY 1 DAYS
  11. METOPROLOL. [Concomitant]
     Active Substance: METOPROLOL
     Dosage: 1 EVERY 1 DAYS
  12. PREDNISONE. [Concomitant]
     Active Substance: PREDNISONE
     Indication: PSORIATIC ARTHROPATHY
     Dosage: 1 EVERY 1 DAYS
     Route: 058
  13. LASIX [Concomitant]
     Active Substance: FUROSEMIDE
     Dosage: 2 EVERY 1 DAYS
  14. APIXABAN [Suspect]
     Active Substance: APIXABAN
     Indication: PRODUCT USED FOR UNKNOWN INDICATION
     Dosage: 1 EVERY 1 DAYS
     Route: 065
  15. TEVA SPIRONOLACTONE/ HCTZ [Suspect]
     Active Substance: HYDROCHLOROTHIAZIDE\SPIRONOLACTONE
     Indication: PRODUCT USED FOR UNKNOWN INDICATION
     Dosage: 1 EVERY 1 DAYS
     Route: 065
  16. RAMIPRIL. [Concomitant]
     Active Substance: RAMIPRIL
     Indication: PSORIATIC ARTHROPATHY
     Dosage: 1 EVERY 1 DAYS

REACTIONS (2)
  - Ejection fraction decreased [Unknown]
  - Cardiac failure congestive [Unknown]
